FAERS Safety Report 8371583-4 (Version None)
Quarter: 2012Q2

REPORT INFORMATION
  Report Type: 
  Country: None (occurrence: None)
  Receive Date: 20120518
  Receipt Date: 20120511
  Transmission Date: 20120825
  Serious: Yes (Hospitalization, Disabling)
  Sender: FDA-Public Use
  Company Number: US-CELGENEUS-163-21880-12040167

PATIENT
  Sex: Male
  Weight: 83.536 kg

DRUGS (25)
  1. COUMADIN [Concomitant]
     Indication: ATRIAL FIBRILLATION
     Route: 065
  2. DEXAMETHASONE [Concomitant]
     Dosage: 20 MILLIGRAM
     Route: 065
  3. ATROVENT [Concomitant]
     Route: 065
  4. PRILOSEC [Concomitant]
     Route: 065
  5. ZOCOR [Concomitant]
     Route: 065
  6. DIGOXIN [Concomitant]
     Route: 065
  7. ACE INHIBITORS [Concomitant]
     Route: 065
  8. LISINOPRIL [Concomitant]
     Route: 065
  9. STOOL SOFTENERS [Concomitant]
     Indication: CONSTIPATION
     Route: 065
  10. ISOSORBIDE MONONITRATE [Concomitant]
     Route: 065
  11. MYCOLOG [Concomitant]
     Route: 065
  12. RISPERIDONE [Concomitant]
     Route: 065
  13. TOPROL-XL [Concomitant]
     Route: 065
  14. MIRALAX [Concomitant]
     Indication: CONSTIPATION
     Route: 065
  15. ANDROGEL [Concomitant]
     Route: 065
  16. MELATONIN [Concomitant]
     Route: 065
  17. ALDACTONE [Concomitant]
     Route: 065
  18. FLUID [Concomitant]
     Route: 041
  19. REVLIMID [Suspect]
     Indication: MULTIPLE MYELOMA
     Dosage: 10 MILLIGRAM
     Route: 048
     Dates: start: 20120304
  20. DULCOLAX [Concomitant]
     Indication: CONSTIPATION
     Route: 065
  21. SINEMET [Concomitant]
     Indication: DEMENTIA
     Route: 065
  22. ASPIRIN [Concomitant]
     Route: 065
  23. NITROGLYCERIN [Concomitant]
     Route: 065
  24. RANEXA [Concomitant]
     Route: 065
  25. VITAMIN D [Concomitant]
     Route: 065

REACTIONS (3)
  - PRESYNCOPE [None]
  - DEHYDRATION [None]
  - ASTHENIA [None]
